FAERS Safety Report 24374497 (Version 4)
Quarter: 2024Q4

REPORT INFORMATION
  Report Type: Spontaneous
  Country: BR (occurrence: BR)
  Receive Date: 20240927
  Receipt Date: 20241219
  Transmission Date: 20250114
  Serious: Yes (Other)
  Sender: SANOFI AVENTIS
  Company Number: BR-SA-2024SA277935

PATIENT
  Age: 49 Year
  Sex: Female

DRUGS (5)
  1. DUPIXENT [Suspect]
     Active Substance: DUPILUMAB
     Indication: Dermatitis atopic
     Dosage: 300 MG, QOW
     Dates: start: 20201209, end: 202303
  2. DUPIXENT [Suspect]
     Active Substance: DUPILUMAB
     Dosage: 300 MG, QOW
     Dates: start: 202401, end: 202401
  3. OZEMPIC [Concomitant]
     Active Substance: SEMAGLUTIDE
     Indication: Weight decreased
     Dosage: UNK
  4. OZEMPIC [Concomitant]
     Active Substance: SEMAGLUTIDE
     Dosage: UNK, STOPPED
  5. XOLAIR [Concomitant]
     Active Substance: OMALIZUMAB
     Dosage: UNK

REACTIONS (17)
  - Syncope [Unknown]
  - Sarcoidosis [Unknown]
  - Erythema nodosum [Unknown]
  - Chest discomfort [Unknown]
  - Pyrexia [Unknown]
  - Folliculitis [Unknown]
  - Peripheral swelling [Unknown]
  - Orthopnoea [Unknown]
  - Malaise [Unknown]
  - Pain [Unknown]
  - Burning sensation [Unknown]
  - Skin infection [Unknown]
  - Fabry^s disease [Unknown]
  - Dermatitis atopic [Recovering/Resolving]
  - Headache [Unknown]
  - Intentional product misuse [Unknown]
  - Drug ineffective [Unknown]

NARRATIVE: CASE EVENT DATE: 20221201
